FAERS Safety Report 18679493 (Version 3)
Quarter: 2021Q2

REPORT INFORMATION
  Report Type: Report from Study
  Country: US (occurrence: US)
  Receive Date: 20201229
  Receipt Date: 20210405
  Transmission Date: 20210717
  Serious: Yes (Hospitalization)
  Sender: FDA-Public Use
  Company Number: US-JNJFOC-20201029893

PATIENT
  Age: 48 Year
  Sex: Female
  Weight: 95.34 kg

DRUGS (4)
  1. ADEMPAS [Concomitant]
     Active Substance: RIOCIGUAT
  2. MACITENTAN [Suspect]
     Active Substance: MACITENTAN
     Indication: PULMONARY ARTERIAL HYPERTENSION
     Route: 065
     Dates: start: 20201009, end: 202011
  3. ORENITRAM [Concomitant]
     Active Substance: TREPROSTINIL
  4. MACITENTAN [Suspect]
     Active Substance: MACITENTAN
     Route: 048
     Dates: start: 20210203

REACTIONS (11)
  - Abdominal pain upper [Not Recovered/Not Resolved]
  - Headache [Not Recovered/Not Resolved]
  - Swelling [Unknown]
  - Fluid retention [Unknown]
  - Dyspnoea exertional [Unknown]
  - Fatigue [Unknown]
  - Overdose [Recovered/Resolved]
  - Oedema [Unknown]
  - Hypersensitivity [Unknown]
  - Discomfort [Unknown]
  - Confusional state [Unknown]

NARRATIVE: CASE EVENT DATE: 20201020
